FAERS Safety Report 15891005 (Version 2)
Quarter: 2019Q1

REPORT INFORMATION
  Report Type: Spontaneous
  Country: TW (occurrence: TW)
  Receive Date: 20190130
  Receipt Date: 20190131
  Transmission Date: 20190417
  Serious: Yes (Life-Threatening, Hospitalization)
  Sender: FDA-Public Use
  Company Number: TW-MYLANLABS-2019M1008138

PATIENT
  Age: 60 Year
  Sex: Female

DRUGS (3)
  1. AMISULPRIDE [Concomitant]
     Active Substance: AMISULPRIDE
     Indication: SCHIZOPHRENIA
     Route: 065
  2. CLOZAPINE. [Suspect]
     Active Substance: CLOZAPINE
     Indication: SCHIZOPHRENIA
     Dosage: 125 MILLIGRAM, QD
     Route: 065
  3. CLOZAPINE. [Suspect]
     Active Substance: CLOZAPINE
     Dosage: 150 MILLIGRAM, QD
     Route: 065

REACTIONS (7)
  - Abdominal distension [Recovering/Resolving]
  - Constipation [Recovering/Resolving]
  - Cytomegalovirus colitis [Recovering/Resolving]
  - Pyrexia [Recovering/Resolving]
  - Hypotension [Recovering/Resolving]
  - Altered state of consciousness [Recovering/Resolving]
  - Septic shock [Recovering/Resolving]
